FAERS Safety Report 23702302 (Version 1)
Quarter: 2024Q2

REPORT INFORMATION
  Report Type: Spontaneous
  Country: US (occurrence: US)
  Receive Date: 20240403
  Receipt Date: 20240403
  Transmission Date: 20240715
  Serious: No
  Sender: FDA-Public Use
  Company Number: US-SA-SAC20240330000009

PATIENT
  Sex: Female

DRUGS (2)
  1. FABRAZYME [Suspect]
     Active Substance: AGALSIDASE BETA
     Indication: Fabry^s disease
     Dosage: 90 MG, QOW IN 250 ML NORMAL SALINE (TOTAL VOLUME) OVER APPROXIMATELY 2.5 HOURS
     Route: 042
     Dates: start: 202303
  2. SODIUM CHLORIDE [Concomitant]
     Active Substance: SODIUM CHLORIDE
     Dosage: 250 ML NORMAL SALINE (TOTAL VOLUME) OVER APPROXIMATELY 2.5 HOURS VIA INFUSION PUMP
     Route: 042

REACTIONS (2)
  - Swelling [Unknown]
  - Erythema [Unknown]
